FAERS Safety Report 9405653 (Version 2)
Quarter: 2013Q3

REPORT INFORMATION
  Report Type: Spontaneous
  Country: JP (occurrence: JP)
  Receive Date: 20130717
  Receipt Date: 20130827
  Transmission Date: 20140515
  Serious: Yes (Death, Life-Threatening)
  Sender: FDA-Public Use
  Company Number: JP-NAPPMUNDI-GBR-2013-0014985

PATIENT
  Sex: Female

DRUGS (1)
  1. OXYCODONE HYDROCHLORIDE [Suspect]
     Indication: CANCER PAIN
     Dosage: 20 MG, DAILY
     Route: 042
     Dates: start: 20130409, end: 20130412

REACTIONS (3)
  - Somnolence [Recovered/Resolved]
  - Malignant neoplasm progression [Fatal]
  - Malignant ascites [Not Recovered/Not Resolved]
